FAERS Safety Report 26043259 (Version 2)
Quarter: 2025Q4

REPORT INFORMATION
  Report Type: Spontaneous
  Country: GB (occurrence: GB)
  Receive Date: 20251113
  Receipt Date: 20251127
  Transmission Date: 20260117
  Serious: Yes (Other)
  Sender: PURDUE
  Company Number: GB-MLMSERVICE-20251104-PI699507-00073-4

PATIENT
  Age: 3 Decade
  Sex: Female

DRUGS (7)
  1. BUPRENORPHINE [Suspect]
     Active Substance: BUPRENORPHINE
     Indication: Drug dependence
     Dosage: IN DIVIDED DOSES ON DAY 01
     Route: 060
  2. BUPRENORPHINE [Suspect]
     Active Substance: BUPRENORPHINE
     Dosage: ON DAY 02 TO DAY 4. ON DAY 05 TAPERING PLAN WAS INITIATED, REDUCING THE DOSE BY 1 MG DAILY, WITH SLO
     Route: 060
  3. BUPRENORPHINE [Suspect]
     Active Substance: BUPRENORPHINE
     Indication: Drug dependence
     Dosage: IN DIVIDED DOSES ON DAY 01
     Route: 060
  4. BUPRENORPHINE [Suspect]
     Active Substance: BUPRENORPHINE
     Dosage: ON DAY 02 TO DAY 4. ON DAY 05 TAPERING PLAN WAS INITIATED, REDUCING THE DOSE BY 1 MG DAILY, WITH SLO
     Route: 060
  5. CITALOPRAM [Concomitant]
     Active Substance: CITALOPRAM
     Indication: Product used for unknown indication
     Dosage: INTERMITTENTLY USE
     Route: 065
  6. LANSOPRAZOLE [Concomitant]
     Active Substance: LANSOPRAZOLE
     Indication: Gastrooesophageal reflux disease
     Dosage: 30 MILLIGRAM, DAILY
     Route: 065
  7. LANSOPRAZOLE [Concomitant]
     Active Substance: LANSOPRAZOLE
     Indication: Vomiting

REACTIONS (5)
  - Drug dependence [Unknown]
  - Drug withdrawal syndrome [Unknown]
  - Oral herpes [Unknown]
  - Vitamin D deficiency [Unknown]
  - Off label use [Unknown]
